FAERS Safety Report 19083163 (Version 1)
Quarter: 2021Q2

REPORT INFORMATION
  Report Type: Spontaneous
  Country: US (occurrence: US)
  Receive Date: 20210401
  Receipt Date: 20210401
  Transmission Date: 20210717
  Serious: Yes (Hospitalization, Other)
  Sender: FDA-Public Use
  Company Number: US-BIOVITRUM-2019US4450

PATIENT
  Age: 41 Year
  Sex: Female

DRUGS (2)
  1. PALIFERMIN [Suspect]
     Active Substance: PALIFERMIN
     Indication: STOMATITIS
     Dates: start: 20190816, end: 20190816
  2. DEGARELIX [Suspect]
     Active Substance: DEGARELIX

REACTIONS (1)
  - Encephalopathy [Unknown]

NARRATIVE: CASE EVENT DATE: 20191029
